FAERS Safety Report 5718078-1 (Version None)
Quarter: 2008Q2

REPORT INFORMATION
  Report Type: 
  Country: None (occurrence: None)
  Receive Date: 20080425
  Receipt Date: 20080415
  Transmission Date: 20081010
  Serious: Yes (Other)
  Sender: FDA-Public Use
  Company Number: US-MERCK-0804USA01835

PATIENT
  Age: 9 Year
  Sex: Male
  Weight: 41 kg

DRUGS (2)
  1. SINGULAIR [Suspect]
     Indication: ASTHMA
     Route: 048
     Dates: start: 20070701, end: 20080401
  2. SINGULAIR [Suspect]
     Indication: RHINITIS ALLERGIC
     Route: 048
     Dates: start: 20070701, end: 20080401

REACTIONS (5)
  - ANXIETY [None]
  - CONVERSION DISORDER [None]
  - CRYING [None]
  - HALLUCINATION [None]
  - MENTAL DISORDER [None]
